FAERS Safety Report 8989751 (Version 1)
Quarter: 2012Q4

REPORT INFORMATION
  Report Type: 
  Country: GB (occurrence: GB)
  Receive Date: 20121228
  Receipt Date: 20121228
  Transmission Date: 20130627
  Serious: Yes (Other)
  Sender: FDA-Public Use
  Company Number: GB-PFIZER INC-2012332016

PATIENT
  Age: 34 Year
  Sex: Female
  Weight: 81 kg

DRUGS (1)
  1. CHAMPIX [Suspect]
     Indication: SMOKING CESSATION THERAPY
     Dosage: starter pack
     Route: 048
     Dates: end: 20120918

REACTIONS (3)
  - Irritability [Recovered/Resolved]
  - Emotional disorder [Recovered/Resolved]
  - Sleep disorder [Recovered/Resolved]
